FAERS Safety Report 24871064 (Version 1)
Quarter: 2025Q1

REPORT INFORMATION
  Report Type: Spontaneous
  Country: US (occurrence: US)
  Receive Date: 20250122
  Receipt Date: 20250122
  Transmission Date: 20250408
  Serious: Yes (Other)
  Sender: ALEXION PHARMACEUTICALS
  Company Number: US-AstraZeneca-CH-00786177A

PATIENT
  Age: 91 Year

DRUGS (1)
  1. SEROQUEL XR [Suspect]
     Active Substance: QUETIAPINE FUMARATE
     Indication: Product used for unknown indication
     Route: 065

REACTIONS (20)
  - Pneumonia [Unknown]
  - Depression suicidal [Unknown]
  - Amnesia [Unknown]
  - Paranoia [Unknown]
  - Cerebrovascular accident [Unknown]
  - Gait disturbance [Unknown]
  - Chills [Unknown]
  - Dyspnoea [Unknown]
  - Confusional state [Unknown]
  - Disorientation [Unknown]
  - Burning sensation [Unknown]
  - Back pain [Unknown]
  - Urinary tract infection [Unknown]
  - Blood potassium decreased [Unknown]
  - Fall [Unknown]
  - Anxiety [Unknown]
  - Tremor [Unknown]
  - Back injury [Unknown]
  - Delusion [Unknown]
  - Head injury [Unknown]
